FAERS Safety Report 7604242-3 (Version None)
Quarter: 2011Q3

REPORT INFORMATION
  Report Type: 
  Country: None (occurrence: None)
  Receive Date: 20110712
  Receipt Date: 20110630
  Transmission Date: 20111222
  Serious: Yes (Hospitalization)
  Sender: FDA-Public Use
  Company Number: JP-MERCK-1105USA03115

PATIENT
  Age: 73 Year
  Sex: Female
  Weight: 56 kg

DRUGS (13)
  1. AZULFIDINE [Concomitant]
     Route: 048
  2. FORTEO [Concomitant]
     Route: 058
  3. DIOVAN [Concomitant]
     Route: 048
  4. VITANEURIN (FURSULTIAMINE (+) HYDROXOCOBALAMIN ACETATE (+) PYRIDOXAL P [Concomitant]
     Route: 048
  5. D-ALPHA [Concomitant]
     Route: 048
  6. JUVELA [Concomitant]
     Route: 048
  7. RISEDRONATE SODIUM [Concomitant]
     Indication: PROPHYLAXIS
     Route: 048
     Dates: end: 20090930
  8. BUFFERIN [Concomitant]
     Route: 048
  9. FOSAMAX [Suspect]
     Indication: PROPHYLAXIS
     Route: 048
     Dates: start: 20090930, end: 20091007
  10. NORVASC [Concomitant]
     Route: 048
  11. SELTEPNON [Concomitant]
     Route: 048
  12. VOLTAREN [Concomitant]
     Route: 048
  13. PEPCID RPD [Concomitant]
     Route: 048

REACTIONS (1)
  - FEMUR FRACTURE [None]
